FAERS Safety Report 19186349 (Version 3)
Quarter: 2021Q2

REPORT INFORMATION
  Report Type: Report from Study
  Country: CA (occurrence: CA)
  Receive Date: 20210427
  Receipt Date: 20210526
  Transmission Date: 20210717
  Serious: Yes (Other)
  Sender: FDA-Public Use
  Company Number: CA-TAKEDA-2021TUS026372

PATIENT
  Age: 70 Year
  Sex: Male
  Weight: 83.9 kg

DRUGS (1)
  1. CUVITRU [Suspect]
     Active Substance: HUMAN IMMUNOGLOBULIN G
     Indication: SECONDARY IMMUNODEFICIENCY
     Dosage: 10 GRAM, 1/WEEK
     Route: 058
     Dates: start: 20180703, end: 202102

REACTIONS (2)
  - Lung neoplasm malignant [Not Recovered/Not Resolved]
  - Terminal state [Not Recovered/Not Resolved]

NARRATIVE: CASE EVENT DATE: 202102
